FAERS Safety Report 25014603 (Version 1)
Quarter: 2025Q1

REPORT INFORMATION
  Report Type: Spontaneous
  Country: FR (occurrence: FR)
  Receive Date: 20250226
  Receipt Date: 20250226
  Transmission Date: 20250409
  Serious: Yes (Life-Threatening)
  Sender: BAUSCH AND LOMB
  Company Number: None

PATIENT
  Age: 75 Year
  Sex: Male
  Weight: 67.5 kg

DRUGS (2)
  1. VENLAFAXINE [Suspect]
     Active Substance: VENLAFAXINE HYDROCHLORIDE
     Indication: Depression
     Route: 048
     Dates: start: 20250102, end: 20250207
  2. TIAPRIDE HYDROCHLORIDE [Suspect]
     Active Substance: TIAPRIDE HYDROCHLORIDE
     Indication: Agitation
     Route: 065
     Dates: start: 20250207, end: 20250207

REACTIONS (2)
  - Acute respiratory distress syndrome [Recovered/Resolved]
  - Coma [Recovering/Resolving]

NARRATIVE: CASE EVENT DATE: 20250207
